FAERS Safety Report 18440791 (Version 1)
Quarter: 2020Q4

REPORT INFORMATION
  Report Type: Other
  Country: SG (occurrence: SG)
  Receive Date: 20201029
  Receipt Date: 20201029
  Transmission Date: 20210114
  Serious: Yes (Death, Other)
  Sender: FDA-Public Use
  Company Number: SG-ROCHE-2569828

PATIENT
  Sex: Male

DRUGS (1)
  1. ATEZOLIZUMAB. [Suspect]
     Active Substance: ATEZOLIZUMAB
     Indication: SMALL CELL LUNG CANCER
     Route: 042
     Dates: start: 201910

REACTIONS (3)
  - Pneumonitis [Unknown]
  - Infection [Unknown]
  - Death [Fatal]

NARRATIVE: CASE EVENT DATE: 201910
